APPROVED DRUG PRODUCT: LEXAPRO
Active Ingredient: ESCITALOPRAM OXALATE
Strength: EQ 5MG BASE/5ML **Federal Register determination that product was not discontinued or withdrawn for safety or effectiveness reasons**
Dosage Form/Route: SOLUTION;ORAL
Application: N021365 | Product #001
Applicant: ABBVIE INC
Approved: Nov 27, 2002 | RLD: Yes | RS: No | Type: DISCN

EXCLUSIVITY:
Code: NPP | Date: May 12, 2026